FAERS Safety Report 9348171 (Version 1)
Quarter: 2013Q2

REPORT INFORMATION
  Report Type: Spontaneous
  Country: US (occurrence: None)
  Receive Date: 20130612
  Receipt Date: 20130612
  Transmission Date: 20140414
  Serious: No
  Sender: FDA-Public Use
  Company Number: None

PATIENT
  Age: 33 Year
  Sex: Female

DRUGS (1)
  1. MIRENA IUD [Suspect]
     Dates: start: 20130301, end: 20130601

REACTIONS (9)
  - Pelvic pain [None]
  - Movement disorder [None]
  - Acne [None]
  - Hypoaesthesia [None]
  - Paraesthesia [None]
  - Dizziness [None]
  - Dizziness [None]
  - Back pain [None]
  - Weight increased [None]
